FAERS Safety Report 5375193-2 (Version None)
Quarter: 2007Q2

REPORT INFORMATION
  Report Type: 
  Country: None (occurrence: None)
  Receive Date: 20070629
  Receipt Date: 20070621
  Transmission Date: 20071010
  Serious: Yes (Hospitalization)
  Sender: FDA-Public Use
  Company Number: DE-ASTRAZENECA-2007PK01267

PATIENT
  Age: 27961 Day
  Sex: Female

DRUGS (7)
  1. FASLODEX [Suspect]
     Indication: BREAST CANCER FEMALE
     Route: 030
     Dates: start: 20061005
  2. STUDY PROCEDURE [Suspect]
     Indication: BREAST CANCER FEMALE
  3. ENALAPRIL [Concomitant]
     Indication: HYPERTENSION
     Route: 048
     Dates: start: 20060913, end: 20061206
  4. CATAPRES [Concomitant]
     Indication: HYPERTENSION
     Route: 048
     Dates: start: 20060913, end: 20061206
  5. METOPROLOL SUCCINATE [Concomitant]
     Indication: HYPERTENSION
     Route: 048
     Dates: start: 20060913, end: 20061206
  6. EBRANTIL [Concomitant]
     Indication: HYPERTENSION
     Route: 048
     Dates: start: 20060913, end: 20061206
  7. DISALUNIL [Concomitant]
     Indication: HYPERTENSION
     Route: 048
     Dates: start: 20060913, end: 20061206

REACTIONS (2)
  - HYPERTENSIVE CRISIS [None]
  - TRANSIENT ISCHAEMIC ATTACK [None]
